FAERS Safety Report 5748694-2 (Version None)
Quarter: 2008Q2

REPORT INFORMATION
  Report Type: 
  Country: None (occurrence: None)
  Receive Date: 20080521
  Receipt Date: 20080507
  Transmission Date: 20081010
  Serious: Yes (Other)
  Sender: FDA-Public Use
  Company Number: WAES 0805AUS00115

PATIENT
  Age: 61 Year

DRUGS (5)
  1. INDOCIN [Suspect]
  2. FOSINOPRIL SODIUM [Suspect]
  3. GLICLAZIDE [Suspect]
  4. METFORMIN HCL [Suspect]
  5. ASPIRIN [Concomitant]

REACTIONS (2)
  - LACTIC ACIDOSIS [None]
  - RENAL FAILURE [None]
